FAERS Safety Report 25674507 (Version 1)
Quarter: 2025Q3

REPORT INFORMATION
  Report Type: Report from Study
  Country: CA (occurrence: CA)
  Receive Date: 20250813
  Receipt Date: 20250813
  Transmission Date: 20251021
  Serious: Yes (Other)
  Sender: SAMSUNG BIOEPIS
  Company Number: CA-SAMSUNG BIOEPIS-SB-2025-27139

PATIENT
  Age: 14 Year
  Sex: Male

DRUGS (4)
  1. RENFLEXIS [Suspect]
     Active Substance: INFLIXIMAB-ABDA
     Indication: Crohn^s disease
     Route: 042
     Dates: start: 20230511
  2. RENFLEXIS [Suspect]
     Active Substance: INFLIXIMAB-ABDA
     Route: 042
  3. FLUOXETINE [Concomitant]
     Active Substance: FLUOXETINE HYDROCHLORIDE
     Indication: Product used for unknown indication
     Route: 048
  4. METAMUCIL CALCIUM [Concomitant]
     Indication: Product used for unknown indication
     Route: 048

REACTIONS (6)
  - Syncope [Unknown]
  - Blood pressure decreased [Unknown]
  - Anxiety [Unknown]
  - Muscle spasms [Unknown]
  - Presyncope [Unknown]
  - Off label use [Unknown]

NARRATIVE: CASE EVENT DATE: 20250806
